FAERS Safety Report 15991496 (Version 1)
Quarter: 2019Q1

REPORT INFORMATION
  Report Type: Spontaneous
  Country: US (occurrence: US)
  Receive Date: 20190221
  Receipt Date: 20190221
  Transmission Date: 20190418
  Serious: No
  Sender: FDA-Public Use
  Company Number: US-B.I. PHARMACEUTICALS,INC./RIDGEFIELD-2019-BI-006087

PATIENT
  Sex: Female
  Weight: 70.76 kg

DRUGS (4)
  1. MOBIC [Suspect]
     Active Substance: MELOXICAM
     Indication: ARTHRITIS
     Route: 065
  2. RANITIDINE. [Concomitant]
     Active Substance: RANITIDINE
     Indication: PRODUCT USED FOR UNKNOWN INDICATION
     Route: 065
  3. CENTRUM SILVER WOMEN 50+ [Suspect]
     Active Substance: MINERALS\VITAMINS
     Indication: PRODUCT USED FOR UNKNOWN INDICATION
     Route: 065
  4. MYLANTA [Concomitant]
     Active Substance: ALUMINUM HYDROXIDE\DIMETHICONE\MAGNESIUM HYDROXIDE
     Indication: PRODUCT USED FOR UNKNOWN INDICATION
     Route: 065

REACTIONS (5)
  - Product availability issue [Unknown]
  - Product quality issue [Unknown]
  - Post procedural complication [Unknown]
  - Gastric disorder [Unknown]
  - Abdominal pain upper [Not Recovered/Not Resolved]
